FAERS Safety Report 5570117-7 (Version None)
Quarter: 2007Q4

REPORT INFORMATION
  Report Type: 
  Country: None (occurrence: None)
  Receive Date: 20071220
  Receipt Date: 20071212
  Transmission Date: 20080405
  Serious: Yes (Other)
  Sender: FDA-Public Use
  Company Number: US-PFIZER INC-2007104275

PATIENT
  Sex: Male
  Weight: 119.8 kg

DRUGS (8)
  1. BEXTRA [Suspect]
     Indication: ARTHRITIS
     Route: 048
     Dates: start: 20021001, end: 20030911
  2. DIAMOX [Concomitant]
  3. DITROPAN [Concomitant]
  4. CELEXA [Concomitant]
  5. TEMAZEPAM [Concomitant]
  6. TOPROL-XL [Concomitant]
  7. NEURONTIN [Concomitant]
  8. GLIPIZIDE [Concomitant]

REACTIONS (1)
  - STEVENS-JOHNSON SYNDROME [None]
